FAERS Safety Report 13938787 (Version 2)
Quarter: 2017Q4

REPORT INFORMATION
  Report Type: Report from Study
  Country: None (occurrence: DE)
  Receive Date: 20170906
  Receipt Date: 20171113
  Transmission Date: 20180320
  Serious: Yes (Hospitalization)
  Sender: FDA-Public Use
  Company Number: DE-ABBVIE-17K-062-2091753-00

PATIENT
  Sex: Female
  Weight: 69 kg

DRUGS (1)
  1. HUMIRA [Suspect]
     Active Substance: ADALIMUMAB
     Indication: UVEITIS
     Route: 058
     Dates: start: 201611, end: 20170806

REACTIONS (6)
  - Lymphadenopathy [Not Recovered/Not Resolved]
  - Urticaria [Recovered/Resolved]
  - Gastritis haemorrhagic [Not Recovered/Not Resolved]
  - Infectious mononucleosis [Recovering/Resolving]
  - Abdominal pain upper [Not Recovered/Not Resolved]
  - Drug hypersensitivity [Recovered/Resolved]

NARRATIVE: CASE EVENT DATE: 2017
